FAERS Safety Report 24838716 (Version 2)
Quarter: 2025Q2

REPORT INFORMATION
  Report Type: Report from Study
  Country: CA (occurrence: CA)
  Receive Date: 20250113
  Receipt Date: 20250422
  Transmission Date: 20250717
  Serious: Yes (Hospitalization, Other)
  Sender: ABBVIE
  Company Number: CA-ABBVIE-6079875

PATIENT
  Age: 62 Year
  Sex: Male

DRUGS (3)
  1. LUPRON [Suspect]
     Active Substance: LEUPROLIDE ACETATE
     Indication: Prostate cancer
     Dosage: FORM STRENGTH:22.5 MG
     Route: 030
     Dates: start: 20160101
  2. LUPRON [Suspect]
     Active Substance: LEUPROLIDE ACETATE
     Route: 030
     Dates: start: 20241015
  3. LUPRON [Suspect]
     Active Substance: LEUPROLIDE ACETATE
     Route: 030
     Dates: start: 20250415

REACTIONS (4)
  - Colon cancer [Unknown]
  - Myocardial infarction [Unknown]
  - Foot fracture [Unknown]
  - Fall [Unknown]

NARRATIVE: CASE EVENT DATE: 20250101
